FAERS Safety Report 17907657 (Version 1)
Quarter: 2020Q2

REPORT INFORMATION
  Report Type: Spontaneous
  Country: US (occurrence: US)
  Receive Date: 20200617
  Receipt Date: 20200617
  Transmission Date: 20200714
  Serious: Yes (Hospitalization, Other)
  Sender: FDA-Public Use
  Company Number: US-BAYER-2020-111288

PATIENT
  Age: 65 Year
  Sex: Female
  Weight: 69.8 kg

DRUGS (5)
  1. REMODULIN [Suspect]
     Active Substance: TREPROSTINIL
     Indication: PULMONARY ARTERIAL HYPERTENSION
     Dosage: 0.031 ?G/KG
     Route: 042
  2. ADEMPAS [Suspect]
     Active Substance: RIOCIGUAT
     Dosage: 1 MG
  3. ADEMPAS [Suspect]
     Active Substance: RIOCIGUAT
     Dosage: 2.5 MG, TID
     Dates: start: 20200530
  4. REMODULIN [Suspect]
     Active Substance: TREPROSTINIL
     Indication: PULMONARY ARTERIAL HYPERTENSION
     Dosage: 0.021 ?G/KG
     Route: 042
     Dates: start: 20200317
  5. REMODULIN [Suspect]
     Active Substance: TREPROSTINIL
     Indication: PULMONARY ARTERIAL HYPERTENSION
     Dosage: 0.028 ?G/KG

REACTIONS (29)
  - Mental impairment [None]
  - Infusion site erythema [Recovering/Resolving]
  - Headache [None]
  - Blood pressure decreased [None]
  - Bendopnoea [None]
  - Pain in jaw [None]
  - Arthralgia [None]
  - Head discomfort [None]
  - Pain [Recovered/Resolved]
  - Oral candidiasis [Not Recovered/Not Resolved]
  - Dyspnoea exertional [None]
  - Peripheral swelling [None]
  - Nausea [None]
  - Flushing [None]
  - Constipation [None]
  - Infusion site reaction [None]
  - Presyncope [None]
  - Back pain [Not Recovered/Not Resolved]
  - Dry skin [None]
  - Depressed mood [None]
  - Dizziness postural [None]
  - Fibromyalgia [None]
  - Infusion site pain [Recovered/Resolved]
  - Contusion [None]
  - Pruritus [None]
  - Feeling abnormal [None]
  - Pain in extremity [Recovered/Resolved]
  - Diarrhoea [None]
  - Flatulence [None]

NARRATIVE: CASE EVENT DATE: 202003
